FAERS Safety Report 7672258-7 (Version None)
Quarter: 2011Q3

REPORT INFORMATION
  Report Type: 
  Country: None (occurrence: None)
  Receive Date: 20110809
  Receipt Date: 20110803
  Transmission Date: 20111222
  Serious: Yes (Death)
  Sender: FDA-Public Use
  Company Number: US-ABBOTT-11P-163-0843974-00

PATIENT
  Age: 27 Year
  Sex: Female

DRUGS (1)
  1. VICODIN [Suspect]
     Indication: PRODUCT USED FOR UNKNOWN INDICATION

REACTIONS (2)
  - ACCIDENTAL DEATH [None]
  - HEPATIC NECROSIS [None]
